FAERS Safety Report 5644040-3 (Version None)
Quarter: 2008Q1

REPORT INFORMATION
  Report Type: 
  Country: None (occurrence: None)
  Receive Date: 20080131
  Receipt Date: 20071001
  Transmission Date: 20080703
  Serious: Yes (Other)
  Sender: FDA-Public Use
  Company Number: 163-21880-07050646

PATIENT
  Age: 76 Year
  Sex: Male
  Weight: 86.1 kg

DRUGS (6)
  1. REVLIMID [Suspect]
     Indication: MULTIPLE MYELOMA
     Dosage: 25 MG, QD ON DAYS 1-21, ORAL ; 25 MG, QD ON DAYS 1-21, ORAL
     Route: 048
     Dates: start: 20070129, end: 20070422
  2. REVLIMID [Suspect]
     Indication: MULTIPLE MYELOMA
     Dosage: 25 MG, QD ON DAYS 1-21, ORAL ; 25 MG, QD ON DAYS 1-21, ORAL
     Route: 048
     Dates: start: 20070501
  3. BEVACIZUMAB (BEVACIZUMAB) [Suspect]
     Indication: MULTIPLE MYELOMA
     Dosage: 10MG/KG, OVER 90-30 MIN ON DAYS 1 AND 15, INTRAVENOUS
     Route: 042
     Dates: start: 20070129, end: 20070416
  4. DEXAMETHASONE TAB [Suspect]
     Indication: MULTIPLE MYELOMA
     Dosage: 40 MG, ON DAYS 1, 8, 15 AND 22, ORAL ; 40 MG, ON DAYS 1, 8, 15 AND 22, ORAL
     Route: 048
     Dates: start: 20070129, end: 20070423
  5. DEXAMETHASONE TAB [Suspect]
     Indication: MULTIPLE MYELOMA
     Dosage: 40 MG, ON DAYS 1, 8, 15 AND 22, ORAL ; 40 MG, ON DAYS 1, 8, 15 AND 22, ORAL
     Route: 048
     Dates: start: 20070501
  6. FUROSEMIDE [Concomitant]

REACTIONS (3)
  - LEFT VENTRICULAR DYSFUNCTION [None]
  - LYMPHOPENIA [None]
  - WHITE BLOOD CELL COUNT DECREASED [None]
